FAERS Safety Report 20063277 (Version 2)
Quarter: 2021Q4

REPORT INFORMATION
  Report Type: Spontaneous
  Country: JP (occurrence: JP)
  Receive Date: 20211112
  Receipt Date: 20211215
  Transmission Date: 20220303
  Serious: Yes (Hospitalization, Other)
  Sender: FDA-Public Use
  Company Number: JP-PFIZER INC-202101514505

PATIENT
  Age: 68 Year
  Sex: Female
  Weight: 52.4 kg

DRUGS (35)
  1. RHEUMATREX [Suspect]
     Active Substance: METHOTREXATE SODIUM
     Indication: Rheumatoid arthritis
     Dosage: 12 MG, WEEKLY
     Route: 048
     Dates: start: 20130222
  2. RHEUMATREX [Suspect]
     Active Substance: METHOTREXATE SODIUM
     Dosage: 16 MG, WEEKLY
     Route: 048
     Dates: start: 20141003
  3. RHEUMATREX [Suspect]
     Active Substance: METHOTREXATE SODIUM
     Dosage: 16 MG, WEEKLY
     Route: 048
     Dates: start: 20180727
  4. RHEUMATREX [Suspect]
     Active Substance: METHOTREXATE SODIUM
     Dosage: 14 MG, WEEKLY
     Route: 048
     Dates: start: 20180907
  5. RHEUMATREX [Suspect]
     Active Substance: METHOTREXATE SODIUM
     Dosage: 14 MG, WEEKLY
     Route: 048
     Dates: start: 20181012
  6. RHEUMATREX [Suspect]
     Active Substance: METHOTREXATE SODIUM
     Dosage: 14 MG, WEEKLY
     Route: 048
     Dates: start: 20181130
  7. RHEUMATREX [Suspect]
     Active Substance: METHOTREXATE SODIUM
     Dosage: 14 MG, WEEKLY
     Route: 048
     Dates: start: 20190125
  8. RHEUMATREX [Suspect]
     Active Substance: METHOTREXATE SODIUM
     Dosage: 14 MG, WEEKLY
     Route: 048
     Dates: start: 20190614
  9. RHEUMATREX [Suspect]
     Active Substance: METHOTREXATE SODIUM
     Dosage: 14 MG, WEEKLY
     Route: 048
     Dates: start: 20201225
  10. RHEUMATREX [Suspect]
     Active Substance: METHOTREXATE SODIUM
     Dosage: 7 DF IN 2 DIVIDED DOSES, WEEKLY (4 DF IN THE MORNING AND 3 DF IN THE EVENING ON WEDNESDAY)
     Route: 048
     Dates: end: 20210831
  11. GLYCOSAMINOGLYCANS [Concomitant]
     Active Substance: GLYCOSAMINOGLYCANS
     Dosage: UNK
     Route: 062
  12. NIZORAL [Concomitant]
     Active Substance: KETOCONAZOLE
     Dosage: UNK
     Route: 062
  13. PREDNISOLONE VALERATE ACETATE [Concomitant]
     Active Substance: PREDNISOLONE VALERATE ACETATE
     Dosage: UNK
     Route: 062
  14. PREDNISOLONE [Concomitant]
     Active Substance: PREDNISOLONE
     Dosage: 10 MG
     Route: 048
     Dates: start: 20130222
  15. PREDNISOLONE [Concomitant]
     Active Substance: PREDNISOLONE
     Dosage: 10 MG
     Route: 048
     Dates: start: 20141003
  16. PREDNISOLONE [Concomitant]
     Active Substance: PREDNISOLONE
     Dosage: 8 MG
     Route: 048
     Dates: start: 20180727
  17. PREDNISOLONE [Concomitant]
     Active Substance: PREDNISOLONE
     Dosage: 7 MG
     Route: 048
     Dates: start: 20181012
  18. PREDNISOLONE [Concomitant]
     Active Substance: PREDNISOLONE
     Dosage: 6 MG
     Route: 048
     Dates: start: 20181130
  19. PREDNISOLONE [Concomitant]
     Active Substance: PREDNISOLONE
     Dosage: 5 MG
     Route: 048
     Dates: start: 20190125
  20. PREDNISOLONE [Concomitant]
     Active Substance: PREDNISOLONE
     Dosage: 4 MG
     Route: 048
     Dates: start: 20190614
  21. PREDNISOLONE [Concomitant]
     Active Substance: PREDNISOLONE
     Dosage: 5 MG
     Route: 048
     Dates: start: 20201225
  22. ALFACALCIDOL [Concomitant]
     Active Substance: ALFACALCIDOL
     Dosage: UNK
     Route: 048
  23. ACTONEL [Concomitant]
     Active Substance: RISEDRONATE SODIUM
     Dosage: UNK
     Route: 048
  24. FOLIC ACID [Concomitant]
     Active Substance: FOLIC ACID
     Dosage: UNK
     Route: 048
  25. FAMOTIDINE [Concomitant]
     Active Substance: FAMOTIDINE
     Dosage: UNK
     Route: 048
  26. XYZAL [Concomitant]
     Active Substance: LEVOCETIRIZINE DIHYDROCHLORIDE
     Dosage: UNK
     Route: 048
  27. ENALAPRIL [Concomitant]
     Active Substance: ENALAPRIL
     Dosage: UNK
     Route: 048
  28. IGURATIMOD [Concomitant]
     Active Substance: IGURATIMOD
     Dosage: 25 MG
     Route: 048
     Dates: start: 20180727
  29. IGURATIMOD [Concomitant]
     Active Substance: IGURATIMOD
     Dosage: 25 MG
     Route: 048
     Dates: start: 20180907
  30. IGURATIMOD [Concomitant]
     Active Substance: IGURATIMOD
     Dosage: 25 MG
     Route: 048
     Dates: start: 20181012
  31. IGURATIMOD [Concomitant]
     Active Substance: IGURATIMOD
     Dosage: 25 MG
     Route: 048
     Dates: start: 20181130
  32. IGURATIMOD [Concomitant]
     Active Substance: IGURATIMOD
     Dosage: 25 MG
     Route: 048
     Dates: start: 20190125
  33. IGURATIMOD [Concomitant]
     Active Substance: IGURATIMOD
     Dosage: 25 MG
     Route: 048
     Dates: start: 20190614
  34. IGURATIMOD [Concomitant]
     Active Substance: IGURATIMOD
     Dosage: 25 MG
     Route: 048
     Dates: start: 20201225
  35. BIO-THREE [Concomitant]
     Active Substance: HERBALS
     Dosage: UNK
     Route: 048

REACTIONS (4)
  - Pancytopenia [Recovering/Resolving]
  - Myelosuppression [Recovering/Resolving]
  - Multiple organ dysfunction syndrome [Unknown]
  - Pneumonia [Unknown]

NARRATIVE: CASE EVENT DATE: 20210907
